FAERS Safety Report 9729477 (Version 1)
Quarter: 2013Q4

REPORT INFORMATION
  Report Type: Spontaneous
  Country: US (occurrence: US)
  Receive Date: 20131204
  Receipt Date: 20131204
  Transmission Date: 20140711
  Serious: No
  Sender: FDA-Public Use
  Company Number: US-GILEAD-2009-0021588

PATIENT
  Sex: Female

DRUGS (14)
  1. LETAIRIS [Suspect]
     Indication: PULMONARY ARTERIAL HYPERTENSION
     Route: 048
  2. REVATIO [Concomitant]
  3. OXYGEN [Concomitant]
  4. LEVOXYL [Concomitant]
  5. LOVASTATIN [Concomitant]
  6. AMOXICILLIN [Concomitant]
  7. CALTRATE [Concomitant]
  8. FIORICET [Concomitant]
  9. MAGNESIUM [Concomitant]
  10. TYLENOL [Concomitant]
  11. ASPIRIN [Concomitant]
  12. LACTAID [Concomitant]
  13. MULTIVITAMIN [Concomitant]
  14. ELLIS TONIC [Concomitant]

REACTIONS (2)
  - Blood pressure decreased [Unknown]
  - Joint swelling [Unknown]
